FAERS Safety Report 16866581 (Version 2)
Quarter: 2020Q4

REPORT INFORMATION
  Report Type: Spontaneous
  Country: US (occurrence: US)
  Receive Date: 20190930
  Receipt Date: 20201019
  Transmission Date: 20210113
  Serious: Yes (Other)
  Sender: FDA-Public Use
  Company Number: US-ALLERGAN-1937191US

PATIENT
  Age: 52 Year
  Sex: Female

DRUGS (1)
  1. VRAYLAR [Suspect]
     Active Substance: CARIPRAZINE
     Indication: DEPRESSION
     Dosage: 3 MG, QHS
     Route: 048
     Dates: start: 20190822, end: 20190902

REACTIONS (8)
  - Off label use [Unknown]
  - Agitation [Recovered/Resolved]
  - Fear [Recovered/Resolved]
  - Panic reaction [Recovered/Resolved]
  - Therapy non-responder [Not Recovered/Not Resolved]
  - Suicidal ideation [Recovered/Resolved]
  - Drug dose titration not performed [Unknown]
  - Condition aggravated [Recovered/Resolved]

NARRATIVE: CASE EVENT DATE: 20190822
